FAERS Safety Report 8288177-1 (Version None)
Quarter: 2012Q2

REPORT INFORMATION
  Report Type: 
  Country: None (occurrence: None)
  Receive Date: 20120416
  Receipt Date: 20120411
  Transmission Date: 20120825
  Serious: Yes (Other)
  Sender: FDA-Public Use
  Company Number: US-BAYER-2012-035981

PATIENT
  Age: 24 Year
  Sex: Female

DRUGS (1)
  1. TRASYLOL [Suspect]
     Indication: AORTIC VALVE REPLACEMENT
     Dosage: UNK
     Dates: start: 19990101

REACTIONS (4)
  - PAIN [None]
  - ATRIOVENTRICULAR BLOCK COMPLETE [None]
  - SYNCOPE [None]
  - CARDIAC FAILURE [None]
